FAERS Safety Report 8552339-6 (Version None)
Quarter: 2012Q3

REPORT INFORMATION
  Report Type: 
  Country: None (occurrence: None)
  Receive Date: 20120718
  Receipt Date: 20120703
  Transmission Date: 20120928
  Serious: Yes (Hospitalization)
  Sender: FDA-Public Use
  Company Number: ACO_31071_2012

PATIENT
  Age: 48 Year
  Sex: Female

DRUGS (4)
  1. L-THYROXINE /00068001/ (LEVOTHYROXINE) [Concomitant]
  2. FAMPYRA (DALFAMPRIDINE) TABLET, 10MG [Suspect]
     Indication: MUSCLE SPASTICITY
     Dosage: 10 UG, ORAL
     Dates: start: 20120331, end: 20120331
  3. VALPROATE SODIUM [Concomitant]
  4. GABAPENTIN [Concomitant]

REACTIONS (1)
  - EPILEPSY [None]
